FAERS Safety Report 20079110 (Version 1)
Quarter: 2021Q4

REPORT INFORMATION
  Report Type: Spontaneous
  Country: US (occurrence: US)
  Receive Date: 20211117
  Receipt Date: 20211117
  Transmission Date: 20220303
  Serious: No
  Sender: FDA-Public Use
  Company Number: US-ALLERGAN-2132119US

PATIENT
  Age: 70 Year
  Sex: Male

DRUGS (3)
  1. RAPAFLO [Suspect]
     Active Substance: SILODOSIN
     Indication: Benign prostatic hyperplasia
  2. TERAZOSIN [Suspect]
     Active Substance: TERAZOSIN HYDROCHLORIDE
     Indication: Benign prostatic hyperplasia
  3. DUPILUMAB [Suspect]
     Active Substance: DUPILUMAB
     Indication: Dermatitis atopic
     Dosage: 600 MG
     Dates: start: 20201228

REACTIONS (8)
  - Constipation [Unknown]
  - Skin induration [Unknown]
  - Scab [Unknown]
  - Skin fissures [Recovered/Resolved]
  - Muscle spasms [Unknown]
  - Skin exfoliation [Recovered/Resolved]
  - Vitreous floaters [Unknown]
  - Skin haemorrhage [Recovered/Resolved]

NARRATIVE: CASE EVENT DATE: 20201201
